FAERS Safety Report 9165774 (Version 1)
Quarter: 2013Q1

REPORT INFORMATION
  Report Type: Spontaneous
  Country: GB (occurrence: None)
  Receive Date: 20130228
  Receipt Date: 20130228
  Transmission Date: 20140127
  Serious: Yes (Disabling, Other)
  Sender: FDA-Public Use
  Company Number: 2013AP003225

PATIENT
  Age: 85 Year
  Sex: Female

DRUGS (16)
  1. ALENDRONATE (ALENDRONATE SODIUM) [Suspect]
     Indication: PRODUCT USED FOR UNKNOWN INDICATION
  2. ATENOLOL (ATENOLOL) [Concomitant]
  3. BECLOMETASONE (BECLOMETASONE) [Concomitant]
  4. CALCIUM CARBONATE (CALCIUM CARBONATE) [Concomitant]
  5. CETIRIZINE (CETIRIZINE HYDROCHLORIDE) [Concomitant]
  6. CO-CODAMOL (PANADEINE CO) [Concomitant]
  7. FOLIC ACID (FOLIC ACID) [Concomitant]
  8. FUROSEMIDE (FUROSEMIDE) [Concomitant]
  9. HYPROMELLOSE (HYPROMELLOSE) [Concomitant]
  10. INDAPAMIDE (INDAPAMIDE) [Concomitant]
  11. NAPROXEN (NAPROXEN) [Concomitant]
  12. OLANZAPINE (OLANZAPINE) [Concomitant]
  13. OMEPRAZOLE (OMEPRAZOLE) [Concomitant]
  14. PARACETAMOL (PARACETAMOL) [Concomitant]
  15. MOVELAT [Concomitant]
  16. MACROGOL [Concomitant]

REACTIONS (1)
  - Decreased appetite [None]
